FAERS Safety Report 12750327 (Version 6)
Quarter: 2017Q1

REPORT INFORMATION
  Report Type: Spontaneous
  Country: GB (occurrence: GB)
  Receive Date: 20160916
  Receipt Date: 20170227
  Transmission Date: 20170428
  Serious: Yes (Hospitalization)
  Sender: FDA-Public Use
  Company Number: GB-CELGENEUS-GBR-2016092562

PATIENT
  Age: 77 Year
  Sex: Male
  Weight: 74 kg

DRUGS (15)
  1. REVLIMID [Suspect]
     Active Substance: LENALIDOMIDE
     Indication: PLASMA CELL MYELOMA
     Dosage: 25 MG
     Route: 048
     Dates: start: 20160831
  2. ALLOPURINOL. [Concomitant]
     Active Substance: ALLOPURINOL
     Indication: PROPHYLAXIS
     Dosage: 300 MG
     Route: 048
     Dates: start: 20160831
  3. RANITIDINE. [Concomitant]
     Active Substance: RANITIDINE
     Indication: GASTRITIS PROPHYLAXIS
     Dosage: 15 MG
     Route: 048
     Dates: start: 20160831
  4. COTRIMOXAZOLE [Concomitant]
     Active Substance: SULFAMETHOXAZOLE\TRIMETHOPRIM
     Indication: ANTIFUNGAL PROPHYLAXIS
     Dosage: 480 MG
     Route: 048
     Dates: start: 20160831
  5. ALFUZOSIN [Concomitant]
     Active Substance: ALFUZOSIN
     Indication: BENIGN PROSTATIC HYPERPLASIA
     Dosage: 2.5 MG
     Route: 048
     Dates: start: 20140123
  6. FELODIPINE. [Concomitant]
     Active Substance: FELODIPINE
     Indication: HYPERTENSION
     Dosage: 5 MG
     Route: 048
     Dates: start: 20160601
  7. DARATUMUMAB [Suspect]
     Active Substance: DARATUMUMAB
     Indication: PLASMA CELL MYELOMA
     Dosage: 1160 MG
     Route: 041
     Dates: start: 20160831, end: 20160831
  8. ZOMORPH [Concomitant]
     Active Substance: MORPHINE SULFATE
     Indication: FRACTURE
     Dosage: 20 MG
     Route: 048
     Dates: start: 20160601
  9. DEXAMETHASONE. [Suspect]
     Active Substance: DEXAMETHASONE
     Indication: PLASMA CELL MYELOMA
     Dosage: 40 MG
     Route: 041
     Dates: start: 20160831
  10. ACICLOVIR [Concomitant]
     Active Substance: ACYCLOVIR
     Indication: ANTIVIRAL PROPHYLAXIS
     Dosage: 400 MG
     Route: 048
     Dates: start: 20160831
  11. ADCAL D3 [Concomitant]
     Active Substance: CALCIUM CARBONATE\CHOLECALCIFEROL
     Indication: OSTEOPENIA
     Dosage: 1 DOSAGE FORMS
     Route: 048
     Dates: start: 20160512
  12. FOLATE [Concomitant]
     Active Substance: FOLATE SODIUM
     Indication: FOLATE DEFICIENCY
     Dosage: 5 MG
     Route: 048
     Dates: start: 201604
  13. ZOLEDRONIC ACID [Concomitant]
     Active Substance: ZOLEDRONIC ACID
     Indication: PROPHYLAXIS
     Dosage: 4 MG
     Route: 041
     Dates: start: 20160831
  14. SOTALOL. [Concomitant]
     Active Substance: SOTALOL
     Indication: ATRIAL FIBRILLATION
     Dosage: 40 MG
     Route: 048
     Dates: start: 20100505
  15. ATORVASTATIN [Concomitant]
     Active Substance: ATORVASTATIN
     Indication: HYPERTENSION
     Dosage: 40 MG
     Route: 048
     Dates: start: 20150604

REACTIONS (1)
  - Extravasation [Recovered/Resolved]

NARRATIVE: CASE EVENT DATE: 20160831
